FAERS Safety Report 5025196-2 (Version None)
Quarter: 2006Q2

REPORT INFORMATION
  Report Type: 
  Country: None (occurrence: None)
  Receive Date: 20060613
  Receipt Date: 20060602
  Transmission Date: 20061013
  Serious: Yes (Hospitalization)
  Sender: FDA-Public Use
  Company Number: FR-GLAXOSMITHKLINE-B0426240A

PATIENT
  Age: 58 Year
  Sex: Male

DRUGS (6)
  1. DEROXAT [Suspect]
     Dosage: 30MG PER DAY
     Route: 048
     Dates: start: 20051101, end: 20060125
  2. HYDROCORTISONE [Suspect]
     Dosage: 50G PER DAY
     Route: 042
     Dates: start: 20060120, end: 20060124
  3. CORTANCYL [Suspect]
     Dosage: 15MG PER DAY
     Route: 048
     Dates: start: 20051220, end: 20060125
  4. KETOPROFEN [Suspect]
     Dosage: 50MG PER DAY
     Route: 048
     Dates: start: 20060119, end: 20060125
  5. MORPHINE [Concomitant]
  6. ATACAND [Concomitant]

REACTIONS (5)
  - ABDOMINAL PAIN [None]
  - CHOLESTASIS [None]
  - GASTROINTESTINAL HAEMORRHAGE [None]
  - PANCREATITIS [None]
  - RED BLOOD CELL COUNT DECREASED [None]
